FAERS Safety Report 21374594 (Version 1)
Quarter: 2022Q3

REPORT INFORMATION
  Report Type: Spontaneous
  Country: JO (occurrence: JO)
  Receive Date: 20220926
  Receipt Date: 20220926
  Transmission Date: 20221027
  Serious: Yes (Hospitalization, Other)
  Sender: FDA-Public Use
  Company Number: JO-NOVOPROD-959135

PATIENT
  Age: 54 Year
  Sex: Male
  Weight: 80 kg

DRUGS (1)
  1. MIXTARD HUMAN 70/30 [Suspect]
     Active Substance: INSULIN HUMAN
     Indication: Type 1 diabetes mellitus
     Dosage: 40 IU, QD(10 IU IN THE MORNING, 15 IN THE MIDDLE OF THE DAY, AND 15 AT NIGHT IF  BG WAS CONTROLLED,)
     Route: 058

REACTIONS (1)
  - Gangrene [Unknown]

NARRATIVE: CASE EVENT DATE: 20220301
